FAERS Safety Report 20014172 (Version 2)
Quarter: 2021Q4

REPORT INFORMATION
  Report Type: Spontaneous
  Country: US (occurrence: None)
  Receive Date: 20211029
  Receipt Date: 20211115
  Transmission Date: 20220303
  Serious: No
  Sender: FDA-Public Use
  Company Number: 2021A787040

PATIENT
  Age: 67 Year
  Sex: Female
  Weight: 138.3 kg

DRUGS (3)
  1. BYDUREON BCISE [Suspect]
     Active Substance: EXENATIDE
     Indication: Type 2 diabetes mellitus
     Dosage: WEEK
     Route: 058
     Dates: start: 20211007, end: 20211014
  2. TRULICITY [Suspect]
     Active Substance: DULAGLUTIDE
     Indication: Type 2 diabetes mellitus
     Route: 065
     Dates: start: 20210729, end: 20210830
  3. LEVEMIR [Concomitant]
     Active Substance: INSULIN DETEMIR
     Indication: Type 2 diabetes mellitus
     Dosage: 50 U. TWICE A DAY
     Dates: start: 19940218

REACTIONS (12)
  - Nausea [Unknown]
  - Eye pain [Unknown]
  - Pain [Unknown]
  - Bone pain [Unknown]
  - Headache [Unknown]
  - Dizziness [Unknown]
  - Vaginal haemorrhage [Unknown]
  - Fatigue [Unknown]
  - Abdominal pain upper [Unknown]
  - Vision blurred [Unknown]
  - Pruritus [Unknown]
  - Food intolerance [Unknown]
